FAERS Safety Report 6767763-1 (Version None)
Quarter: 2010Q2

REPORT INFORMATION
  Report Type: 
  Country: None (occurrence: None)
  Receive Date: 20100614
  Receipt Date: 20100601
  Transmission Date: 20101027
  Serious: Yes (Other)
  Sender: FDA-Public Use
  Company Number: PHHY2010FR36713

PATIENT
  Age: 68 Year
  Sex: Female

DRUGS (2)
  1. RASILEZ HCT [Suspect]
     Indication: HYPERTENSION
     Dosage: 300/12.5 MG
     Dates: start: 20100301
  2. CORDARONE [Concomitant]
     Indication: HYPERTENSION
     Dosage: UNK

REACTIONS (2)
  - ARRHYTHMIA [None]
  - CARDIAC FIBRILLATION [None]
